FAERS Safety Report 7232357-0 (Version None)
Quarter: 2010Q4

REPORT INFORMATION
  Report Type: 
  Country: None (occurrence: None)
  Receive Date: 20101029
  Receipt Date: 20100325
  Transmission Date: 20110411
  Serious: No
  Sender: FDA-Public Use
  Company Number: 2010-0998

PATIENT
  Age: 10 Year
  Sex: Male
  Weight: 22.7 kg

DRUGS (2)
  1. INCRELEX [Suspect]
     Indication: BODY HEIGHT BELOW NORMAL
     Dosage: 18 UNITS (18 UNITS, 1 IN 1 D), SUBCUTANEOUS
     Route: 058
     Dates: start: 20091024, end: 20091124
  2. GROWTH HORMONE NOS (SOMATROPIN) [Concomitant]

REACTIONS (1)
  - HYPOGLYCAEMIA [None]
